FAERS Safety Report 18943119 (Version 1)
Quarter: 2021Q1

REPORT INFORMATION
  Report Type: Report from Study
  Country: CA (occurrence: CA)
  Receive Date: 20210226
  Receipt Date: 20210226
  Transmission Date: 20210420
  Serious: Yes (Other)
  Sender: FDA-Public Use
  Company Number: CA-JNJFOC-20210233928

PATIENT
  Age: 8 Decade
  Sex: Male
  Weight: 74 kg

DRUGS (1)
  1. REMICADE [Suspect]
     Active Substance: INFLIXIMAB
     Indication: COLITIS ULCERATIVE
     Dosage: RECENT DOSE ON 05?JAN?2021
     Route: 042

REACTIONS (5)
  - Hyperhidrosis [Unknown]
  - Prostate cancer metastatic [Not Recovered/Not Resolved]
  - Metastases to bone [Not Recovered/Not Resolved]
  - Hypotension [Recovered/Resolved]
  - Infusion related reaction [Unknown]

NARRATIVE: CASE EVENT DATE: 20200831
